FAERS Safety Report 9221911 (Version 1)
Quarter: 2013Q2

REPORT INFORMATION
  Report Type: Spontaneous
  Country: US (occurrence: None)
  Receive Date: 20130410
  Receipt Date: 20130410
  Transmission Date: 20140414
  Serious: Yes (Hospitalization)
  Sender: FDA-Public Use
  Company Number: None

PATIENT
  Age: 74 Year
  Sex: Male
  Weight: 102 kg

DRUGS (22)
  1. COUMADIN [Suspect]
     Indication: ATRIAL FIBRILLATION
     Dosage: 3MG  MWF PO?CHRONIC
     Route: 048
  2. COUMADIN [Suspect]
     Indication: ATRIAL FIBRILLATION
     Dosage: 1.5MG  SSTTH  PO?CHRONIC
     Route: 048
  3. ASA [Suspect]
     Route: 048
  4. DASATINIB [Suspect]
  5. CILOSTAZOL [Concomitant]
  6. VIT D [Concomitant]
  7. ALPRAZOLAM [Concomitant]
  8. AMIODARONE [Concomitant]
  9. HYDROCODONE/APAP [Concomitant]
  10. KCL [Concomitant]
  11. LASIX [Concomitant]
  12. LOSARTAN [Concomitant]
  13. FERROUS SULFATE [Concomitant]
  14. LOVASTATIN [Concomitant]
  15. MAG OX [Concomitant]
  16. METOPROLOL [Concomitant]
  17. PRAMIPEXOLE [Concomitant]
  18. BUPRION [Concomitant]
  19. COMBIVENT [Concomitant]
  20. FLONASE [Concomitant]
  21. ALLEGRA [Concomitant]
  22. AMBIEN [Concomitant]

REACTIONS (6)
  - Chronic myeloid leukaemia [None]
  - Haemoptysis [None]
  - Hypoxia [None]
  - Pneumonia [None]
  - Sepsis [None]
  - Coagulopathy [None]
